FAERS Safety Report 7075444-2 (Version None)
Quarter: 2010Q4

REPORT INFORMATION
  Report Type: 
  Country: None (occurrence: None)
  Receive Date: 20101030
  Receipt Date: 20100917
  Transmission Date: 20110411
  Serious: No
  Sender: FDA-Public Use
  Company Number: US-WYE-H17636710

PATIENT
  Sex: Female

DRUGS (4)
  1. PRISTIQ [Suspect]
     Indication: DEPRESSION
     Route: 048
  2. LIPITOR [Concomitant]
  3. VITAMINS [Concomitant]
  4. SYNTHROID [Concomitant]

REACTIONS (1)
  - HEADACHE [None]
